FAERS Safety Report 6347216-5 (Version None)
Quarter: 2009Q3

REPORT INFORMATION
  Report Type: 
  Country: None (occurrence: None)
  Receive Date: 20090910
  Receipt Date: 20090902
  Transmission Date: 20100115
  Serious: Yes (Hospitalization)
  Sender: FDA-Public Use
  Company Number: FR-ROCHE-654181

PATIENT
  Age: 74 Year
  Sex: Female

DRUGS (6)
  1. XELODA [Suspect]
     Route: 048
     Dates: start: 20090305, end: 20090312
  2. TYVERB [Suspect]
     Dosage: STRENGTH REPORTED AS: 250. TOTAL DAILY DOSE REPORTED AS 1250.
     Route: 048
     Dates: start: 20090305, end: 20090312
  3. ZOMETA [Suspect]
     Dosage: FORM: INJECTABLE SOLUTION
     Route: 042
     Dates: start: 20090305, end: 20090305
  4. NEURONTIN [Concomitant]
  5. EFFERALGAN CODEINE [Concomitant]
  6. INEXIUM [Concomitant]

REACTIONS (3)
  - DIARRHOEA [None]
  - PANCREATITIS [None]
  - RENAL FAILURE [None]
